FAERS Safety Report 10264255 (Version 1)
Quarter: 2014Q2

REPORT INFORMATION
  Report Type: Other
  Country: DE (occurrence: DE)
  Receive Date: 20140627
  Receipt Date: 20140627
  Transmission Date: 20141212
  Serious: No
  Sender: FDA-Public Use
  Company Number: DE-LUPIN PHARMACEUTICALS INC.-E2B_00001824

PATIENT
  Age: 59 Year
  Sex: Male
  Weight: 132 kg

DRUGS (7)
  1. SIMVASTATIN [Suspect]
     Indication: PROPHYLAXIS
     Route: 048
     Dates: start: 20131231, end: 20140108
  2. SIMVASTATIN [Suspect]
     Route: 048
     Dates: start: 20140109, end: 20140122
  3. SIMVASTATIN [Suspect]
     Route: 065
     Dates: start: 20140217
  4. ASS [Concomitant]
     Indication: PROPHYLAXIS
     Route: 048
     Dates: start: 20131231
  5. PLAVIX [Concomitant]
     Indication: PROPHYLAXIS
     Route: 048
     Dates: start: 20131231
  6. ALLOPURINOL [Concomitant]
     Indication: HYPERURICAEMIA
     Route: 048
  7. RAMIPRIL [Concomitant]
     Indication: HYPERTENSION
     Route: 048

REACTIONS (1)
  - Blood creatine phosphokinase increased [Unknown]
